FAERS Safety Report 8375749-9 (Version None)
Quarter: 2012Q2

REPORT INFORMATION
  Report Type: 
  Country: None (occurrence: None)
  Receive Date: 20120518
  Receipt Date: 20120518
  Transmission Date: 20120825
  Serious: Yes (Hospitalization)
  Sender: FDA-Public Use
  Company Number: None

PATIENT
  Sex: Male
  Weight: 108 kg

DRUGS (1)
  1. CISPLATIN [Suspect]

REACTIONS (3)
  - HYPOPHAGIA [None]
  - PAIN [None]
  - ASTHENIA [None]
